FAERS Safety Report 6053352-3 (Version None)
Quarter: 2009Q1

REPORT INFORMATION
  Report Type: 
  Country: None (occurrence: None)
  Receive Date: 20090123
  Receipt Date: 20090109
  Transmission Date: 20090719
  Serious: Yes (Hospitalization)
  Sender: FDA-Public Use
  Company Number: 2009S1000561

PATIENT
  Age: 80 Year
  Sex: Female

DRUGS (8)
  1. SPIRONOLACTONE [Suspect]
     Indication: OEDEMA
     Dosage: 50 MG;DAILY;ORAL
     Route: 048
     Dates: end: 20080731
  2. DIGITOXIN INJ [Suspect]
     Indication: CARDIAC FAILURE
     Dosage: 0.07 MG;DAILY;ORAL
     Route: 048
     Dates: end: 20080731
  3. ACTRAPID HUMAN [Concomitant]
  4. ALLOPURINOL [Concomitant]
  5. ASPIRIN [Concomitant]
  6. BISOPROLOL [Concomitant]
  7. INEGY [Concomitant]
  8. NAPROXEN [Concomitant]

REACTIONS (9)
  - ASPARTATE AMINOTRANSFERASE INCREASED [None]
  - ASTHENIA [None]
  - BLOOD CREATININE INCREASED [None]
  - BLOOD SODIUM DECREASED [None]
  - BLOOD UREA INCREASED [None]
  - C-REACTIVE PROTEIN INCREASED [None]
  - CARDIOACTIVE DRUG LEVEL INCREASED [None]
  - GAMMA-GLUTAMYLTRANSFERASE INCREASED [None]
  - WHITE BLOOD CELL COUNT INCREASED [None]
